FAERS Safety Report 9140943 (Version 2)
Quarter: 2013Q2

REPORT INFORMATION
  Report Type: Spontaneous
  Country: FR (occurrence: FR)
  Receive Date: 20130305
  Receipt Date: 20130408
  Transmission Date: 20140414
  Serious: Yes (Death, Hospitalization, Other)
  Sender: FDA-Public Use
  Company Number: FR-PFIZER INC-2013074136

PATIENT
  Age: 72 Year
  Sex: Female

DRUGS (3)
  1. TAZOCILLINE [Suspect]
     Dosage: UNK
     Dates: start: 20130202
  2. PYOSTACINE [Suspect]
     Indication: CELLULITIS
     Dosage: 3 G, 1X/DAY
     Route: 048
     Dates: start: 20130124, end: 20130202
  3. OFLOCET [Suspect]
     Dosage: 500 MG, 1X/DAY
     Route: 048
     Dates: start: 20130202

REACTIONS (9)
  - Septic shock [Fatal]
  - Blood lactic acid increased [Fatal]
  - Dermatitis exfoliative [Not Recovered/Not Resolved]
  - Renal failure acute [Recovered/Resolved]
  - Aspartate aminotransferase increased [Not Recovered/Not Resolved]
  - Blood alkaline phosphatase increased [Not Recovered/Not Resolved]
  - Leukocytosis [Not Recovered/Not Resolved]
  - Escherichia infection [Unknown]
  - Pseudomonas infection [Unknown]
